FAERS Safety Report 17965360 (Version 1)
Quarter: 2020Q3

REPORT INFORMATION
  Report Type: Report from Study
  Country: US (occurrence: US)
  Receive Date: 20200701
  Receipt Date: 20200701
  Transmission Date: 20201103
  Serious: Yes (Other)
  Sender: FDA-Public Use
  Company Number: US-TAIHO ONCOLOGY  INC-EU-2020-01970

PATIENT
  Sex: Female
  Weight: 116.41 kg

DRUGS (1)
  1. LONSURF [Suspect]
     Active Substance: TIPIRACIL HYDROCHLORIDE\TRIFLURIDINE
     Indication: COLORECTAL CANCER METASTATIC
     Dosage: CYCLE UNKNOWN
     Route: 048
     Dates: start: 20200525

REACTIONS (8)
  - Bedridden [Unknown]
  - Mineral supplementation [Unknown]
  - Urinary tract infection [Unknown]
  - Fatigue [Unknown]
  - Vulvovaginal injury [Unknown]
  - Feeling abnormal [Unknown]
  - Transfusion [Unknown]
  - Product dose omission issue [Unknown]

NARRATIVE: CASE EVENT DATE: 2020
